FAERS Safety Report 5278483-7 (Version None)
Quarter: 2007Q1

REPORT INFORMATION
  Report Type: 
  Country: None (occurrence: None)
  Receive Date: 20070328
  Receipt Date: 20070323
  Transmission Date: 20070707
  Serious: Yes (Hospitalization)
  Sender: FDA-Public Use
  Company Number: 2007AC00486

PATIENT
  Age: 17622 Day
  Sex: Female

DRUGS (1)
  1. MARCAINE [Suspect]
     Indication: ALLERGY TEST
     Route: 058
     Dates: start: 20061129, end: 20061129

REACTIONS (3)
  - CHEST DISCOMFORT [None]
  - DYSPNOEA [None]
  - HYPERSENSITIVITY [None]
